FAERS Safety Report 22353190 (Version 2)
Quarter: 2023Q2

REPORT INFORMATION
  Report Type: Report from Study
  Country: BR (occurrence: BR)
  Receive Date: 20230523
  Receipt Date: 20230531
  Transmission Date: 20230721
  Serious: Yes (Hospitalization)
  Sender: FDA-Public Use
  Company Number: BR-CELLTRION INC.-2023BR010611

PATIENT

DRUGS (3)
  1. INFLIXIMAB [Suspect]
     Active Substance: INFLIXIMAB
     Indication: Rheumatoid arthritis
     Dosage: 3 AMPOULES EVERY 2 MONTHS
     Route: 042
     Dates: start: 20221013
  2. XARELTO [Concomitant]
     Active Substance: RIVAROXABAN
     Indication: Thrombosis
     Dosage: 1 PILL PER DAY
     Route: 048
  3. PURAN [Concomitant]
     Active Substance: LEVOTHYROXINE SODIUM
     Indication: Hypothyroidism
     Dosage: 1 PILL PER DAY
     Route: 048

REACTIONS (3)
  - Cough [Not Recovered/Not Resolved]
  - Pain [Not Recovered/Not Resolved]
  - Intentional dose omission [Not Recovered/Not Resolved]

NARRATIVE: CASE EVENT DATE: 20221201
